FAERS Safety Report 4400021-9 (Version None)
Quarter: 2004Q3

REPORT INFORMATION
  Report Type: 
  Country: None (occurrence: None)
  Receive Date: 20040714
  Receipt Date: 20040702
  Transmission Date: 20050211
  Serious: Yes (Death)
  Sender: FDA-Public Use
  Company Number: 2004SE03572

PATIENT
  Age: 64 Year
  Sex: Male

DRUGS (4)
  1. BLOPRESS [Suspect]
     Indication: HYPERTENSION
     Dosage: 2 MG QD PO
     Route: 048
     Dates: start: 20040619, end: 20040619
  2. CARVEDILOL [Concomitant]
  3. TICLOPIDINE HCL [Concomitant]
  4. BUFFERIN [Concomitant]

REACTIONS (7)
  - ATRIOVENTRICULAR BLOCK [None]
  - BLOOD CREATININE INCREASED [None]
  - BLOOD UREA INCREASED [None]
  - CARDIAC ARREST [None]
  - HAEMODIALYSIS [None]
  - HYPERKALAEMIA [None]
  - MULTI-ORGAN FAILURE [None]
